FAERS Safety Report 5080360-1 (Version None)
Quarter: 2006Q3

REPORT INFORMATION
  Report Type: 
  Country: None (occurrence: None)
  Receive Date: 20060814
  Receipt Date: 20060814
  Transmission Date: 20061208
  Serious: Yes (Life-Threatening, Hospitalization, Disabling)
  Sender: FDA-Public Use
  Company Number: None

PATIENT
  Age: 62 Year
  Sex: Male

DRUGS (1)
  1. BYETTA [Suspect]
     Indication: DIABETES MELLITUS
     Dosage: A FEW DAYS

REACTIONS (4)
  - ANURIA [None]
  - BLOOD CREATININE INCREASED [None]
  - NAUSEA [None]
  - ORAL INTAKE REDUCED [None]
